FAERS Safety Report 14846447 (Version 2)
Quarter: 2019Q3

REPORT INFORMATION
  Report Type: Spontaneous
  Country: US (occurrence: US)
  Receive Date: 20180504
  Receipt Date: 20190822
  Transmission Date: 20191004
  Serious: Yes (Death, Hospitalization, Other)
  Sender: FDA-Public Use
  Company Number: US-HORIZON-VIM-0422-2018

PATIENT
  Sex: Male
  Weight: 114 kg

DRUGS (51)
  1. LEVEMIR [Concomitant]
     Active Substance: INSULIN DETEMIR
  2. BYETTA [Concomitant]
     Active Substance: EXENATIDE
  3. METFORMIN [Concomitant]
     Active Substance: METFORMIN HYDROCHLORIDE
  4. ATENOLOL. [Concomitant]
     Active Substance: ATENOLOL
  5. SERTRALINE [Concomitant]
     Active Substance: SERTRALINE HYDROCHLORIDE
  6. ATORVASTATIN [Concomitant]
     Active Substance: ATORVASTATIN
  7. INSULIN [Concomitant]
     Active Substance: INSULIN NOS
  8. MELATONIN [Concomitant]
     Active Substance: MELATONIN
  9. PREVACID 24 HR [Suspect]
     Active Substance: LANSOPRAZOLE
     Dosage: UNK
     Route: 065
     Dates: start: 1990, end: 2017
  10. ACIPHEX [Suspect]
     Active Substance: RABEPRAZOLE SODIUM
     Dosage: UNK
     Route: 065
     Dates: start: 1990, end: 2017
  11. PREVACID [Suspect]
     Active Substance: LANSOPRAZOLE
     Route: 048
     Dates: start: 20170427, end: 20170428
  12. PROTONIX [Suspect]
     Active Substance: PANTOPRAZOLE SODIUM
     Route: 065
     Dates: start: 20100129
  13. ATENOLOL. [Concomitant]
     Active Substance: ATENOLOL
  14. ZETIA [Concomitant]
     Active Substance: EZETIMIBE
  15. FOLATE [Concomitant]
     Active Substance: FOLATE SODIUM
  16. FOLIC ACID. [Concomitant]
     Active Substance: FOLIC ACID
  17. ASPIRIN. [Concomitant]
     Active Substance: ASPIRIN
  18. QUETIAPINE. [Concomitant]
     Active Substance: QUETIAPINE
  19. VANCOMYCIN [Concomitant]
     Active Substance: VANCOMYCIN
  20. PREVACID [Suspect]
     Active Substance: LANSOPRAZOLE
     Dosage: UNK
     Route: 065
     Dates: start: 2009, end: 2017
  21. HUMIRA [Concomitant]
     Active Substance: ADALIMUMAB
  22. PLAQUENIL [Concomitant]
     Active Substance: HYDROXYCHLOROQUINE SULFATE
  23. DUONEB [Concomitant]
     Active Substance: ALBUTEROL SULFATE\IPRATROPIUM BROMIDE
  24. PRILOSEC [Suspect]
     Active Substance: OMEPRAZOLE MAGNESIUM
     Dosage: UNK
     Route: 048
     Dates: start: 1990, end: 2017
  25. PROTONIX [Suspect]
     Active Substance: PANTOPRAZOLE SODIUM
     Dosage: UNK
     Route: 065
     Dates: start: 2009, end: 2017
  26. PREDNISONE. [Concomitant]
     Active Substance: PREDNISONE
  27. HUMALOG [Concomitant]
     Active Substance: INSULIN LISPRO
  28. PROMETHAZINE [Concomitant]
     Active Substance: PROMETHAZINE HYDROCHLORIDE
  29. NEXIUM [Suspect]
     Active Substance: ESOMEPRAZOLE MAGNESIUM
     Dosage: UNK
     Route: 048
     Dates: start: 1990, end: 2017
  30. NEXIUM 24HR [Suspect]
     Active Substance: ESOMEPRAZOLE MAGNESIUM
     Dosage: UNK
     Route: 048
     Dates: start: 1990, end: 2017
  31. PRILOSEC OTC [Suspect]
     Active Substance: OMEPRAZOLE MAGNESIUM
     Dosage: UNK
     Route: 048
     Dates: start: 1990, end: 2017
  32. DEXILANT [Suspect]
     Active Substance: DEXLANSOPRAZOLE
     Dosage: UNK
     Route: 065
     Dates: start: 1990, end: 2017
  33. NAPROXEN. [Concomitant]
     Active Substance: NAPROXEN
  34. FENOFIBRATE. [Concomitant]
     Active Substance: FENOFIBRATE
  35. HYDROCODONE BITARTRATE AND ACETAMINOPHEN [Concomitant]
     Active Substance: ACETAMINOPHEN\HYDROCODONE BITARTRATE
  36. LORAZEPAM. [Concomitant]
     Active Substance: LORAZEPAM
  37. ADALIMUMAB [Concomitant]
     Active Substance: ADALIMUMAB
  38. VIMOVO [Suspect]
     Active Substance: ESOMEPRAZOLE MAGNESIUM\NAPROXEN
     Indication: PRODUCT USED FOR UNKNOWN INDICATION
     Dosage: UNK
     Route: 048
     Dates: start: 1990, end: 2017
  39. PROTONIX [Suspect]
     Active Substance: PANTOPRAZOLE SODIUM
     Dosage: UNK
     Route: 065
     Dates: start: 1990, end: 2017
  40. PRILOSEC [Suspect]
     Active Substance: OMEPRAZOLE MAGNESIUM
     Dosage: UNK
     Route: 048
     Dates: start: 2009, end: 2017
  41. HYDROXYCHLOROQUINE [Concomitant]
     Active Substance: HYDROXYCHLOROQUINE
  42. AVANDAMET [Concomitant]
     Active Substance: METFORMIN HYDROCHLORIDE\ROSIGLITAZONE MALEATE
  43. LIPITOR [Concomitant]
     Active Substance: ATORVASTATIN CALCIUM
  44. QUINAPRIL. [Concomitant]
     Active Substance: QUINAPRIL
  45. PRILOSEC [Suspect]
     Active Substance: OMEPRAZOLE MAGNESIUM
     Route: 048
  46. TRICOR [Concomitant]
     Active Substance: FENOFIBRATE
  47. MOTRIN [Concomitant]
     Active Substance: IBUPROFEN
  48. ATENOLOL. [Concomitant]
     Active Substance: ATENOLOL
  49. CALCIUM CARBONATE. [Concomitant]
     Active Substance: CALCIUM CARBONATE
  50. CARVEDILOL. [Concomitant]
     Active Substance: CARVEDILOL
  51. PREVACID [Suspect]
     Active Substance: LANSOPRAZOLE
     Dosage: UNK
     Route: 065
     Dates: start: 1990, end: 2017

REACTIONS (5)
  - Renal failure [Unknown]
  - Acute kidney injury [Unknown]
  - Death [Fatal]
  - Chronic kidney disease [Unknown]
  - End stage renal disease [Unknown]
